FAERS Safety Report 17779171 (Version 1)
Quarter: 2020Q2

REPORT INFORMATION
  Report Type: Spontaneous
  Country: US (occurrence: US)
  Receive Date: 20200513
  Receipt Date: 20200513
  Transmission Date: 20200714
  Serious: Yes (Other)
  Sender: FDA-Public Use
  Company Number: US-ALLERGAN-2001473US

PATIENT
  Sex: Female

DRUGS (1)
  1. REFRESH RELIEVA [Suspect]
     Active Substance: CARBOXYMETHYLCELLULOSE SODIUM\GLYCERIN
     Indication: DRY EYE
     Dosage: 2 GTT, PRN
     Route: 047

REACTIONS (4)
  - Blindness [Not Recovered/Not Resolved]
  - Macular fibrosis [Not Recovered/Not Resolved]
  - Limbal stem cell deficiency [Not Recovered/Not Resolved]
  - Therapeutic product effect incomplete [Unknown]
